FAERS Safety Report 19506489 (Version 2)
Quarter: 2022Q1

REPORT INFORMATION
  Report Type: Spontaneous
  Country: BR (occurrence: BR)
  Receive Date: 20210708
  Receipt Date: 20220317
  Transmission Date: 20220424
  Serious: Yes (Death, Other)
  Sender: FDA-Public Use
  Company Number: BR-PFIZER INC-2021783293

PATIENT
  Sex: Male
  Weight: 3.43 kg

DRUGS (2)
  1. ALPROSTADIL [Suspect]
     Active Substance: ALPROSTADIL
     Indication: Heart disease congenital
     Dosage: STARTED 0.05 UG/KG/MIN
     Dates: start: 201901
  2. ALPROSTADIL [Suspect]
     Active Substance: ALPROSTADIL
     Dosage: UP TO A MAXIMUM OF 0.08 UG/KG/MIN ON THE TWELFTH DAY
     Dates: start: 201901

REACTIONS (1)
  - Periostitis [Fatal]

NARRATIVE: CASE EVENT DATE: 20190101
